FAERS Safety Report 11316772 (Version 1)
Quarter: 2015Q3

REPORT INFORMATION
  Report Type: Spontaneous
  Country: US (occurrence: US)
  Receive Date: 20150728
  Receipt Date: 20150728
  Transmission Date: 20151125
  Serious: Yes (Other)
  Sender: FDA-Public Use
  Company Number: US-AMGEN-USASP2015075649

PATIENT
  Age: 61 Year
  Sex: Female

DRUGS (1)
  1. ENBREL [Suspect]
     Active Substance: ETANERCEPT
     Indication: RHEUMATOID ARTHRITIS
     Dosage: UNK UNK, UNK
     Route: 065

REACTIONS (10)
  - Tenderness [Unknown]
  - Feeling hot [Unknown]
  - Drug dose omission [Unknown]
  - Malaise [Unknown]
  - Peripheral swelling [Unknown]
  - Joint swelling [Unknown]
  - Cough [Unknown]
  - Respiratory tract congestion [Unknown]
  - Macular fibrosis [Unknown]
  - Viral infection [Unknown]
